FAERS Safety Report 8431531-5 (Version None)
Quarter: 2012Q2

REPORT INFORMATION
  Report Type: 
  Country: None (occurrence: None)
  Receive Date: 20120613
  Receipt Date: 20120602
  Transmission Date: 20120825
  Serious: Yes (Hospitalization, Disabling, Other)
  Sender: FDA-Public Use
  Company Number: US-BAYER-2012-055846

PATIENT
  Sex: Female

DRUGS (2)
  1. AVELOX [Suspect]
     Indication: SINUSITIS
     Dosage: 1 PILL
     Dates: start: 20100101
  2. STEROID ANTIBACTERIALS [Concomitant]

REACTIONS (28)
  - HYPOAESTHESIA [None]
  - FACIAL PAIN [None]
  - PAIN IN EXTREMITY [None]
  - EXCESSIVE EYE BLINKING [None]
  - DISORIENTATION [None]
  - SPEECH DISORDER [None]
  - LIMB DISCOMFORT [None]
  - ARTHRALGIA [None]
  - PARAESTHESIA [None]
  - LOSS OF EMPLOYMENT [None]
  - PHOTOPHOBIA [None]
  - VERTIGO [None]
  - HYPERHIDROSIS [None]
  - HYPERACUSIS [None]
  - AMNESIA [None]
  - FATIGUE [None]
  - PAIN [None]
  - MUSCLE TWITCHING [None]
  - DRUG HYPERSENSITIVITY [None]
  - MIGRAINE [None]
  - ARTHROPATHY [None]
  - TENDERNESS [None]
  - MUSCULAR WEAKNESS [None]
  - COORDINATION ABNORMAL [None]
  - HEADACHE [None]
  - INSOMNIA [None]
  - CONTUSION [None]
  - FEELING COLD [None]
